FAERS Safety Report 8468866-6 (Version None)
Quarter: 2012Q2

REPORT INFORMATION
  Report Type: 
  Country: None (occurrence: None)
  Receive Date: 20120620
  Receipt Date: 20120614
  Transmission Date: 20120825
  Serious: Yes (Other)
  Sender: FDA-Public Use
  Company Number: 2012MA007387

PATIENT
  Age: 45 Year
  Sex: Female

DRUGS (1)
  1. PERMETHRIN [Suspect]
     Indication: LICE INFESTATION
     Dosage: 1 PCT;X1;TOP
     Route: 061
     Dates: start: 20110501, end: 20110501

REACTIONS (4)
  - SKIN ULCER [None]
  - HEADACHE [None]
  - ALOPECIA [None]
  - DEAFNESS UNILATERAL [None]
